FAERS Safety Report 13554701 (Version 1)
Quarter: 2017Q2

REPORT INFORMATION
  Report Type: Spontaneous
  Country: US (occurrence: US)
  Receive Date: 20170517
  Receipt Date: 20170517
  Transmission Date: 20170830
  Serious: No
  Sender: FDA-Public Use
  Company Number: US-ELI_LILLY_AND_COMPANY-US201705003242

PATIENT
  Age: 35 Year
  Sex: Female

DRUGS (4)
  1. TRULICITY [Suspect]
     Active Substance: DULAGLUTIDE
     Indication: PRODUCT USED FOR UNKNOWN INDICATION
     Dosage: 1.5 MG, UNKNOWN
     Route: 065
     Dates: start: 20170411, end: 20170508
  2. LEVEMIR [Concomitant]
     Active Substance: INSULIN DETEMIR
  3. JANUVIA [Concomitant]
     Active Substance: SITAGLIPTIN PHOSPHATE
  4. GLIPIZIDE. [Concomitant]
     Active Substance: GLIPIZIDE

REACTIONS (4)
  - Fall [Unknown]
  - Nausea [Unknown]
  - Diarrhoea [Unknown]
  - Malaise [Unknown]

NARRATIVE: CASE EVENT DATE: 20170411
